FAERS Safety Report 23515990 (Version 1)
Quarter: 2024Q1

REPORT INFORMATION
  Report Type: Spontaneous
  Country: JP (occurrence: JP)
  Receive Date: 20240213
  Receipt Date: 20240213
  Transmission Date: 20240410
  Serious: Yes (Other)
  Sender: FDA-Public Use
  Company Number: JP-JT-EVA202400124AKEBIAP

PATIENT
  Sex: Female

DRUGS (2)
  1. FERRIC CITRATE ANHYDROUS [Suspect]
     Active Substance: FERRIC CITRATE ANHYDROUS
     Indication: Anaemia
     Dosage: UNK
     Route: 048
  2. FERRIC CITRATE ANHYDROUS [Suspect]
     Active Substance: FERRIC CITRATE ANHYDROUS
     Dosage: UNK
     Route: 048
     Dates: start: 202104

REACTIONS (8)
  - Renal transplant [Unknown]
  - Uterine cancer [Unknown]
  - Lymphoedema [Unknown]
  - Abdominal pain lower [Unknown]
  - Faeces discoloured [Unknown]
  - Diarrhoea [Unknown]
  - Constipation [Unknown]
  - Serum ferritin increased [Unknown]
